FAERS Safety Report 7276444-X (Version None)
Quarter: 2011Q1

REPORT INFORMATION
  Report Type: 
  Country: None (occurrence: None)
  Receive Date: 20110204
  Receipt Date: 20110131
  Transmission Date: 20110831
  Serious: Yes (Other)
  Sender: FDA-Public Use
  Company Number: CA-AMGEN-CANSP2010006268

PATIENT
  Age: 66 Year
  Sex: Female
  Weight: 44 kg

DRUGS (4)
  1. PROLIA [Suspect]
     Indication: PRODUCT USED FOR UNKNOWN INDICATION
     Dosage: 60 MG, ONE TIME DOSE
     Route: 058
     Dates: start: 20101110
  2. PROLIA [Suspect]
     Indication: OSTEOPOROSIS
  3. VITAMIN A [Concomitant]
     Indication: OSTEOPOROSIS
     Dosage: 1000 IU, QD
     Route: 048
     Dates: start: 20060401
  4. CALCIUM [Concomitant]
     Indication: OSTEOPOROSIS
     Dosage: 500 MG, UNK
     Route: 048
     Dates: start: 20060401

REACTIONS (2)
  - ENDOMETRIAL ATROPHY [None]
  - VAGINAL HAEMORRHAGE [None]
